FAERS Safety Report 7572069 (Version 3)
Quarter: 2013Q1

REPORT INFORMATION
  Report Type: Spontaneous
  Country: US (occurrence: US)
  Receive Date: 20100903
  Receipt Date: 20130311
  Transmission Date: 20140127
  Serious: Yes (Hospitalization, Other)
  Sender: FDA-Public Use
  Company Number: US-BAYER-201032097NA

PATIENT
  Age: 30 Year
  Sex: Female
  Weight: 84 kg

DRUGS (6)
  1. YAZ [Suspect]
     Route: 048
  2. YASMIN [Suspect]
     Indication: CONTRACEPTION
     Dosage: UNK
     Route: 048
     Dates: start: 2005, end: 2010
  3. OCELLA [Suspect]
     Indication: CONTRACEPTION
     Dosage: UNK
     Route: 048
     Dates: start: 2005, end: 2010
  4. MAXALT [Concomitant]
     Dosage: UNK
     Dates: start: 2005
  5. NEXIUM [Concomitant]
     Indication: DYSPEPSIA
     Dosage: UNK
     Dates: start: 2000
  6. RELPAX [Concomitant]
     Dosage: 40 MG, PRN

REACTIONS (11)
  - Pulmonary embolism [None]
  - Myocardial infarction [Unknown]
  - Cerebral haemorrhage [Unknown]
  - Cerebral thrombosis [Unknown]
  - Hypertension [Unknown]
  - Gallbladder disorder [Unknown]
  - Hepatic adenoma [Unknown]
  - Benign hepatic neoplasm [Unknown]
  - Thrombophlebitis [Unknown]
  - Embolism [Unknown]
  - Deep vein thrombosis [Unknown]
